FAERS Safety Report 13745511 (Version 12)
Quarter: 2017Q4

REPORT INFORMATION
  Report Type: Report from Study
  Country: BE (occurrence: BE)
  Receive Date: 20170712
  Receipt Date: 20171214
  Transmission Date: 20180320
  Serious: Yes (Hospitalization, Other)
  Sender: FDA-Public Use
  Company Number: BE-BAYER-2017-028608

PATIENT
  Age: 50 Year
  Sex: Female

DRUGS (11)
  1. NEXAVAR [Suspect]
     Active Substance: SORAFENIB
     Indication: HEPATOCELLULAR CARCINOMA
     Dosage: 800 MG, QD
     Dates: start: 20170628
  2. AMLOR [Concomitant]
     Active Substance: AMLODIPINE BESYLATE
     Dosage: 5 MG, UNK
     Dates: start: 20170628, end: 20170701
  3. NEXAVAR [Suspect]
     Active Substance: SORAFENIB
     Indication: METASTASES TO LUNG
     Dosage: 400 MG, QD
     Dates: start: 20170613
  4. NEXAVAR [Suspect]
     Active Substance: SORAFENIB
     Indication: HEPATOCELLULAR CARCINOMA
     Dosage: DAILY DOSE: 800 MG
     Dates: start: 2017, end: 20171204
  5. NEXAVAR [Suspect]
     Active Substance: SORAFENIB
     Indication: HEPATOCELLULAR CARCINOMA
     Dosage: 800 MG, QD
     Dates: start: 20170117
  6. PANTOPRAZOLE [Concomitant]
     Active Substance: PANTOPRAZOLE
     Dosage: 40 MG, UNK
  7. IMODIUM [Concomitant]
     Active Substance: LOPERAMIDE HYDROCHLORIDE
     Dosage: UP TO 6 PER DAY
  8. NEXAVAR [Suspect]
     Active Substance: SORAFENIB
     Indication: HEPATOCELLULAR CARCINOMA
     Dosage: 600 MG, QD
     Dates: start: 20170703, end: 2017
  9. CANNABIS [Concomitant]
     Active Substance: CANNABIS SATIVA SUBSP. INDICA TOP
     Dosage: 2 GTT, QD
  10. NEXAVAR [Suspect]
     Active Substance: SORAFENIB
     Indication: HEPATOCELLULAR CARCINOMA
     Dosage: 600 MG, QD
     Dates: start: 20170620
  11. COVERAM [Concomitant]
     Active Substance: AMLODIPINE\PERINDOPRIL
     Dosage: 5 MG, UNK
     Dates: start: 20170701

REACTIONS (56)
  - Weight increased [None]
  - Pruritus [None]
  - Rash [None]
  - Hypertension [None]
  - Weight decreased [Not Recovered/Not Resolved]
  - Diarrhoea [Not Recovered/Not Resolved]
  - Ocular icterus [Unknown]
  - Hypertension [None]
  - Intentional product use issue [None]
  - Constipation [None]
  - Gastrointestinal pain [None]
  - Increased appetite [None]
  - Hypovitaminosis [None]
  - Dysgeusia [Not Recovered/Not Resolved]
  - Alopecia [Unknown]
  - Hepatic pain [None]
  - Fatigue [Not Recovered/Not Resolved]
  - Palmar-plantar erythrodysaesthesia syndrome [Not Recovered/Not Resolved]
  - Palmar-plantar erythrodysaesthesia syndrome [Not Recovered/Not Resolved]
  - Mouth haemorrhage [Recovered/Resolved]
  - Hyperventilation [Recovered/Resolved]
  - Tremor [None]
  - Ear discomfort [Recovered/Resolved]
  - Abdominal pain upper [None]
  - Liver function test abnormal [Recovering/Resolving]
  - Fatigue [Not Recovered/Not Resolved]
  - Dry mouth [None]
  - Decreased appetite [Recovering/Resolving]
  - Weight decreased [Not Recovered/Not Resolved]
  - Hyperventilation [Unknown]
  - Stress [None]
  - Restlessness [None]
  - Tongue disorder [None]
  - Pain in extremity [None]
  - Diarrhoea [Not Recovered/Not Resolved]
  - Abdominal pain [Recovering/Resolving]
  - Hepatitis [Unknown]
  - Dyspnoea exertional [None]
  - Mucosal inflammation [None]
  - Pain in extremity [Recovering/Resolving]
  - Abdominal mass [Not Recovered/Not Resolved]
  - Eructation [Not Recovered/Not Resolved]
  - Pulmonary pain [None]
  - Hyperkeratosis [None]
  - Blister [None]
  - Weight decreased [None]
  - Hepatic function abnormal [None]
  - Weight decreased [Not Recovered/Not Resolved]
  - Hypertension [Unknown]
  - Abdominal neoplasm [Unknown]
  - Thermal burn [None]
  - Sinus congestion [Recovered/Resolved]
  - Palmar-plantar erythrodysaesthesia syndrome [Not Recovered/Not Resolved]
  - Musculoskeletal stiffness [None]
  - Decreased appetite [Not Recovered/Not Resolved]
  - Nasopharyngitis [Recovered/Resolved]

NARRATIVE: CASE EVENT DATE: 20170202
